FAERS Safety Report 23602099 (Version 1)
Quarter: 2024Q1

REPORT INFORMATION
  Report Type: Spontaneous
  Country: US (occurrence: None)
  Receive Date: 20240306
  Receipt Date: 20240306
  Transmission Date: 20240409
  Serious: No
  Sender: FDA-Public Use
  Company Number: None

PATIENT
  Age: 75 Year
  Sex: Female
  Weight: 59.4 kg

DRUGS (4)
  1. AIMOVIG [Suspect]
     Active Substance: ERENUMAB-AOOE
     Indication: Ophthalmic migraine
     Dosage: OTHER QUANTITY : 1 DROP(S);?
     Dates: start: 20240215, end: 20240215
  2. LUMIGAN [Concomitant]
     Active Substance: BIMATOPROST
  3. VITAMINS [Concomitant]
     Active Substance: VITAMINS
  4. OMEGA 3 [Concomitant]
     Active Substance: CAPSAICIN

REACTIONS (1)
  - Alopecia [None]

NARRATIVE: CASE EVENT DATE: 20240216
